FAERS Safety Report 18544709 (Version 2)
Quarter: 2020Q4

REPORT INFORMATION
  Report Type: Spontaneous
  Country: EC (occurrence: EC)
  Receive Date: 20201125
  Receipt Date: 20201210
  Transmission Date: 20210114
  Serious: Yes (Death, Other)
  Sender: FDA-Public Use
  Company Number: EC-AMGEN-ECUSP2020189555

PATIENT
  Age: 16 Year
  Sex: Female

DRUGS (1)
  1. NEULASTIM [Suspect]
     Active Substance: PEGFILGRASTIM
     Indication: LUNG NEOPLASM MALIGNANT
     Dosage: 6 MILLIGRAM, CYCLICAL
     Route: 058
     Dates: start: 2020, end: 2020

REACTIONS (3)
  - Off label use [Unknown]
  - Death [Fatal]
  - Oncologic complication [Unknown]

NARRATIVE: CASE EVENT DATE: 2020
